FAERS Safety Report 15531404 (Version 1)
Quarter: 2018Q4

REPORT INFORMATION
  Report Type: Spontaneous
  Country: FR (occurrence: FR)
  Receive Date: 20181019
  Receipt Date: 20181019
  Transmission Date: 20190205
  Serious: Yes (Other)
  Sender: FDA-Public Use
  Company Number: FR-AUROBINDO-AUR-APL-2018-049746

PATIENT
  Age: 30 Year
  Sex: Male

DRUGS (1)
  1. TRAMADOL ARROW TABLET 50MG [Suspect]
     Active Substance: TRAMADOL
     Indication: PRODUCT USED FOR UNKNOWN INDICATION
     Dosage: UNK,UNSPECIFIED
     Route: 065

REACTIONS (2)
  - Prescription form tampering [Recovering/Resolving]
  - Drug dependence [Recovering/Resolving]
